FAERS Safety Report 7844491-2 (Version None)
Quarter: 2011Q4

REPORT INFORMATION
  Report Type: 
  Country: None (occurrence: None)
  Receive Date: 20111025
  Receipt Date: 20111017
  Transmission Date: 20120403
  Serious: Yes (Hospitalization)
  Sender: FDA-Public Use
  Company Number: US-BRISTOL-MYERS SQUIBB COMPANY-14489868

PATIENT
  Age: 63 Year
  Sex: Male
  Weight: 75 kg

DRUGS (2)
  1. ERBITUX [Suspect]
     Indication: HEAD AND NECK CANCER
     Dosage: 1STDOSE:08DEC08.400MG/M2 IV LOAD DOSE FOLLD BY WKS 1-7,250MG/M2IV.DOSE DELYD,LAST DOSE ON 29DEC08
     Route: 042
     Dates: start: 20081208
  2. CISPLATIN [Suspect]
     Indication: HEAD AND NECK CANCER
     Dosage: 1ST DOSE:08DEC2008.100MG/M2 IV DL+D22.DOSE DELAYED DUE TO PLTS BELOW 75,000,LAST DOSE ON 15DEC08
     Route: 042
     Dates: start: 20081208

REACTIONS (5)
  - LYMPHOCYTE COUNT DECREASED [None]
  - STOMATITIS [None]
  - WHITE BLOOD CELL COUNT DECREASED [None]
  - PHARYNGEAL INFLAMMATION [None]
  - ORAL PAIN [None]
